FAERS Safety Report 23814134 (Version 3)
Quarter: 2024Q2

REPORT INFORMATION
  Report Type: Spontaneous
  Country: DE (occurrence: DE)
  Receive Date: 20240503
  Receipt Date: 20240621
  Transmission Date: 20240715
  Serious: Yes (Hospitalization, Other)
  Sender: FDA-Public Use
  Company Number: DE-LESVI-2024001877

PATIENT
  Age: 40 Year
  Sex: Male

DRUGS (11)
  1. AMISULPRIDE [Suspect]
     Active Substance: AMISULPRIDE
     Indication: Schizophrenia
     Dosage: 400 MILLIGRAM(400-0-400-0)
     Route: 048
  2. CLOZAPINE [Suspect]
     Active Substance: CLOZAPINE
     Indication: Schizophrenia
     Dosage: 300-300-300 (EVERY 8 HOURS)
     Route: 048
  3. HYDROMORPHONE [Suspect]
     Active Substance: HYDROMORPHONE
     Indication: Procedural pain
     Dosage: 400 MILLIGRAM, TWO TIMES A DAY
     Route: 065
  4. HYDROMORPHONE [Suspect]
     Active Substance: HYDROMORPHONE
     Indication: Analgesic therapy
  5. LORAZEPAM [Suspect]
     Active Substance: LORAZEPAM
     Indication: Agitation
     Dosage: 1MG-0-1MG-2.5MG 3 TIMES A DAY
     Route: 065
  6. LORAZEPAM [Suspect]
     Active Substance: LORAZEPAM
     Dosage: 2.5 MILLIGRAM, ONCE A DAY
     Route: 065
  7. LORAZEPAM [Suspect]
     Active Substance: LORAZEPAM
     Dosage: 1 MILLIGRAM, TWO TIMES A DAY
     Route: 065
  8. PIPAMPERONE [Suspect]
     Active Substance: PIPAMPERONE
     Indication: Schizophrenia
     Dosage: 40 MILLIGRAM, UNK((40MG-40MG-40MG-40MG0)
     Route: 048
  9. PANTOPRAZOLE [Concomitant]
     Active Substance: PANTOPRAZOLE
     Indication: Product used for unknown indication
     Dosage: UNK
     Route: 065
  10. ENOXAPARIN [Concomitant]
     Active Substance: ENOXAPARIN
     Indication: Product used for unknown indication
     Dosage: UNK
     Route: 065
  11. ACETAMINOPHEN [Concomitant]
     Active Substance: ACETAMINOPHEN
     Indication: Product used for unknown indication
     Dosage: UNK
     Route: 065

REACTIONS (17)
  - Tachycardia [Unknown]
  - Disorientation [Unknown]
  - Pneumonia aspiration [Unknown]
  - Salivary hypersecretion [Unknown]
  - Sedation [Unknown]
  - Delirium [Unknown]
  - Condition aggravated [Recovered/Resolved]
  - Multiple fractures [Unknown]
  - Psychomotor retardation [Unknown]
  - Suicide attempt [Unknown]
  - Agitation [Unknown]
  - Constipation [Recovered/Resolved]
  - Psychotic disorder [Recovered/Resolved]
  - Antipsychotic drug level below therapeutic [Unknown]
  - Toxicity to various agents [Unknown]
  - Treatment noncompliance [Unknown]
  - Overdose [Unknown]
